FAERS Safety Report 18573314 (Version 4)
Quarter: 2021Q1

REPORT INFORMATION
  Report Type: Spontaneous
  Country: US (occurrence: US)
  Receive Date: 20201203
  Receipt Date: 20210127
  Transmission Date: 20210419
  Serious: No
  Sender: FDA-Public Use
  Company Number: US-SA-2020SA345079

PATIENT
  Age: 55 Year
  Sex: Female

DRUGS (1)
  1. CABLIVI [Suspect]
     Active Substance: CAPLACIZUMAB-YHDP
     Indication: THROMBOTIC MICROANGIOPATHY
     Dosage: 11 MG, QD
     Route: 058
     Dates: start: 20201125

REACTIONS (3)
  - Injection site erythema [Unknown]
  - Platelet count decreased [Unknown]
  - Injection site bruising [Unknown]

NARRATIVE: CASE EVENT DATE: 202011
